FAERS Safety Report 5713947-0 (Version None)
Quarter: 2008Q2

REPORT INFORMATION
  Report Type: 
  Country: None (occurrence: None)
  Receive Date: 20080422
  Receipt Date: 20080422
  Transmission Date: 20081010
  Serious: Yes (Death, Hospitalization)
  Sender: FDA-Public Use
  Company Number: None

PATIENT
  Sex: Male
  Weight: 9.5 kg

DRUGS (3)
  1. CYCLOPHOSPHAMIDE [Suspect]
     Dosage: 528 MG
  2. DOXORUBICIN HYDROCHLORIDE [Suspect]
     Dosage: 33 MG
  3. VINCRISTINE SULFATE [Suspect]
     Dosage: .48 MG

REACTIONS (30)
  - ACUTE PRERENAL FAILURE [None]
  - ASCITES [None]
  - BILIRUBIN CONJUGATED INCREASED [None]
  - BLOOD ALKALINE PHOSPHATASE INCREASED [None]
  - BLOOD BILIRUBIN INCREASED [None]
  - COMPUTERISED TOMOGRAM ABDOMEN ABNORMAL [None]
  - COMPUTERISED TOMOGRAM ABNORMAL [None]
  - FLUID OVERLOAD [None]
  - GASTROINTESTINAL DISORDER [None]
  - GASTROINTESTINAL NEOPLASM [None]
  - GENERAL PHYSICAL HEALTH DETERIORATION [None]
  - HYPERCALCAEMIA [None]
  - JAUNDICE [None]
  - LABORATORY TEST ABNORMAL [None]
  - LUNG DISORDER [None]
  - NEOPLASM [None]
  - OEDEMA PERIPHERAL [None]
  - ORAL INTAKE REDUCED [None]
  - PERITONEAL EFFUSION [None]
  - PLEURAL EFFUSION [None]
  - PULMONARY HAEMORRHAGE [None]
  - RENAL DISORDER [None]
  - RENAL FAILURE [None]
  - RESPIRATORY DISORDER [None]
  - RESPIRATORY DISTRESS [None]
  - RETROGRADE PORTAL VEIN FLOW [None]
  - SCROTAL OEDEMA [None]
  - TACHYPNOEA [None]
  - THROMBOCYTOPENIA [None]
  - VENOOCCLUSIVE LIVER DISEASE [None]
